FAERS Safety Report 7426803-7 (Version None)
Quarter: 2011Q2

REPORT INFORMATION
  Report Type: 
  Country: None (occurrence: None)
  Receive Date: 20110420
  Receipt Date: 20110308
  Transmission Date: 20111010
  Serious: Yes (Hospitalization)
  Sender: FDA-Public Use
  Company Number: US-BRISTOL-MYERS SQUIBB COMPANY-15680218

PATIENT
  Age: 64 Year
  Sex: Male
  Weight: 102 kg

DRUGS (11)
  1. TESTOSTERONE CYPIONATE [Concomitant]
     Dosage: 1 DF =  USE AS DIRECTED,200MG/ML OIL
  2. CARVEDILOL [Concomitant]
     Dosage: 1 DF = 6.25MG TABS,1 REFILLS
  3. METFORMIN HCL [Concomitant]
     Dosage: 1 DF = 500MG TB24
  4. VENLAFAXINE HCL [Concomitant]
     Dosage: 1 DF = 25MG TABS
  5. CRESTOR [Suspect]
     Dosage: 1 DF = 10MG TABS,1 AT BEDTIME
  6. AVALIDE [Concomitant]
     Dosage: 1 DF = 1 QAM,1 REFILLS
  7. BENICAR HCT [Concomitant]
     Dosage: 1 DF = 40-12.5MG TABS,1 QAM
  8. CIALIS [Concomitant]
     Dosage: 1 DF = 10MG TABS
  9. SPIRIVA [Concomitant]
     Dosage: SPIRAVA HANDI HALER 18MCG CAPS,1 DF = 1 EVERY MORNING,30DAYS
  10. ONGLYZA [Suspect]
     Dosage: 1 DF = 1 EVERY MORNING
  11. SYMBICORT [Suspect]
     Indication: CHRONIC OBSTRUCTIVE PULMONARY DISEASE
     Dosage: 1 DF = 1 OR 2 PUFFS,160/4.5MCG/ACT AERO
     Route: 055
     Dates: start: 20100928

REACTIONS (2)
  - BRONCHITIS [None]
  - CHRONIC OBSTRUCTIVE PULMONARY DISEASE [None]
